FAERS Safety Report 21235822 (Version 1)
Quarter: 2022Q3

REPORT INFORMATION
  Report Type: Report from Study
  Country: US (occurrence: US)
  Receive Date: 20220821
  Receipt Date: 20220821
  Transmission Date: 20221026
  Serious: Yes (Other)
  Sender: FDA-Public Use
  Company Number: US-BRISTOL-MYERS SQUIBB COMPANY-2022-091414

PATIENT
  Age: 90 Year
  Sex: Male
  Weight: 69.04 kg

DRUGS (1)
  1. REVLIMID [Suspect]
     Active Substance: LENALIDOMIDE
     Indication: 5q minus syndrome
     Dosage: 5MG /1 CAP DAILY
     Route: 048
     Dates: start: 202208

REACTIONS (5)
  - Pruritus [Unknown]
  - Flushing [Unknown]
  - Pain in jaw [Unknown]
  - Body temperature increased [Unknown]
  - Ear discomfort [Unknown]

NARRATIVE: CASE EVENT DATE: 20220801
